FAERS Safety Report 6527527-0 (Version None)
Quarter: 2010Q1

REPORT INFORMATION
  Report Type: 
  Country: None (occurrence: None)
  Receive Date: 20100104
  Receipt Date: 20100104
  Transmission Date: 20100710
  Serious: Yes (Life-Threatening)
  Sender: FDA-Public Use
  Company Number: None

PATIENT
  Sex: Female
  Weight: 73.0291 kg

DRUGS (1)
  1. MECLIZINE HCL [Suspect]
     Indication: VERTIGO POSITIONAL
     Dosage: 12.5MG THREE TIMES DAILY PO
     Route: 048
     Dates: start: 20091201, end: 20091231

REACTIONS (2)
  - DIZZINESS [None]
  - VISION BLURRED [None]
